FAERS Safety Report 19389576 (Version 1)
Quarter: 2021Q2

REPORT INFORMATION
  Report Type: Spontaneous
  Country: DE (occurrence: DE)
  Receive Date: 20210608
  Receipt Date: 20210608
  Transmission Date: 20210717
  Serious: Yes (Hospitalization)
  Sender: FDA-Public Use
  Company Number: NVSC2021DE123534

PATIENT
  Sex: Female
  Weight: 98 kg

DRUGS (4)
  1. CYCLOPHOSPHAMIDE. [Concomitant]
     Active Substance: CYCLOPHOSPHAMIDE
     Indication: BREAST NEOPLASM
     Dosage: 480 MG/M2
     Route: 042
     Dates: start: 20210212, end: 20210212
  2. PEGFILGRASTIM [Suspect]
     Active Substance: PEGFILGRASTIM
     Indication: PRODUCT USED FOR UNKNOWN INDICATION
     Dosage: 6 MG (6 MG PRE?FILLED PEN 1ST CYCLE)
     Route: 058
     Dates: start: 20210120, end: 20210120
  3. PEGFILGRASTIM [Suspect]
     Active Substance: PEGFILGRASTIM
     Dosage: 6 MG ( PRE?FILLED PEN2ND CYCLE)
     Route: 058
     Dates: start: 20210213, end: 20210213
  4. EPIRUBICIN [Concomitant]
     Active Substance: EPIRUBICIN
     Indication: BREAST NEOPLASM
     Dosage: 72 MG/M2
     Route: 042
     Dates: start: 20210212, end: 20210212

REACTIONS (1)
  - Pneumonia [Recovered/Resolved]

NARRATIVE: CASE EVENT DATE: 20210303
